FAERS Safety Report 16542936 (Version 1)
Quarter: 2019Q3

REPORT INFORMATION
  Report Type: Report from Study
  Country: US (occurrence: US)
  Receive Date: 20190709
  Receipt Date: 20190709
  Transmission Date: 20191004
  Serious: Yes (Hospitalization)
  Sender: FDA-Public Use
  Company Number: US-BIOGEN-2019BI00759117

PATIENT
  Sex: Female

DRUGS (1)
  1. TECFIDERA [Suspect]
     Active Substance: DIMETHYL FUMARATE
     Indication: MULTIPLE SCLEROSIS
     Dosage: MAINTENANCE DOSE
     Route: 048
     Dates: start: 2016

REACTIONS (6)
  - Balance disorder [Not Recovered/Not Resolved]
  - Blindness unilateral [Unknown]
  - Hyperhidrosis [Unknown]
  - Nausea [Recovered/Resolved]
  - Product dose omission [Recovered/Resolved]
  - Feeling hot [Unknown]
